FAERS Safety Report 5134886-2 (Version None)
Quarter: 2006Q4

REPORT INFORMATION
  Report Type: 
  Country: None (occurrence: None)
  Receive Date: 20061025
  Receipt Date: 20061023
  Transmission Date: 20070319
  Serious: Yes (Hospitalization)
  Sender: FDA-Public Use
  Company Number: AU-BRISTOL-MYERS SQUIBB COMPANY-13553276

PATIENT
  Age: 67 Year
  Sex: Male

DRUGS (14)
  1. ABILIFY [Suspect]
     Indication: PSYCHOTIC DISORDER
     Route: 048
     Dates: start: 20060512, end: 20060526
  2. CARBAMAZEPINE [Suspect]
     Route: 048
     Dates: start: 20050523, end: 20050525
  3. LITHIUM CARBONATE [Suspect]
     Route: 048
     Dates: start: 20050518, end: 20050523
  4. VALPROATE SODIUM [Concomitant]
  5. ATORVASTATIN CALCIUM [Concomitant]
     Indication: METABOLIC DISORDER
  6. RISPERIDONE [Concomitant]
     Indication: PSYCHOTIC DISORDER
  7. BENZYDAMINE HCL [Concomitant]
  8. FGF [Concomitant]
  9. METFORMIN HYDROCHLORIDE [Concomitant]
     Indication: DIABETES MELLITUS
  10. CAPTOPRIL [Concomitant]
     Indication: ESSENTIAL HYPERTENSION
  11. GLIMEPIRIDE [Concomitant]
     Indication: DIABETES MELLITUS
  12. ASPIRIN [Concomitant]
     Indication: COAGULOPATHY
  13. CLONAZEPAM [Concomitant]
     Indication: PSYCHOTIC DISORDER
  14. LEVODOPA + BENSERAZIDE [Concomitant]
     Indication: PARKINSON'S DISEASE

REACTIONS (5)
  - COGWHEEL RIGIDITY [None]
  - CONDITION AGGRAVATED [None]
  - LOCKED-IN SYNDROME [None]
  - PARKINSONISM [None]
  - PSYCHOMOTOR RETARDATION [None]
